FAERS Safety Report 15787491 (Version 21)
Quarter: 2020Q3

REPORT INFORMATION
  Report Type: Report from Study
  Country: US (occurrence: US)
  Receive Date: 20190103
  Receipt Date: 20200729
  Transmission Date: 20201102
  Serious: Yes (Hospitalization, Other)
  Sender: FDA-Public Use
  Company Number: US-ACTELION-A-NJ2019-184390

PATIENT
  Age: 65 Year
  Sex: Female
  Weight: 81.63 kg

DRUGS (12)
  1. ROCEPHIN [Concomitant]
     Active Substance: CEFTRIAXONE SODIUM
     Dosage: UNK
     Dates: start: 20190322
  2. LORAZEPAM. [Concomitant]
     Active Substance: LORAZEPAM
     Dosage: 1 MG, BID
     Dates: end: 20190201
  3. IMODIUM [Concomitant]
     Active Substance: LOPERAMIDE HYDROCHLORIDE
     Dosage: UNK
     Dates: start: 20190128
  4. UPTRAVI [Suspect]
     Active Substance: SELEXIPAG
     Indication: PULMONARY ARTERIAL HYPERTENSION
     Dosage: 1600 MCG, BID
     Route: 048
     Dates: start: 201809
  5. OPSUMIT [Suspect]
     Active Substance: MACITENTAN
     Indication: PULMONARY ARTERIAL HYPERTENSION
     Dosage: 10 MG, QD
     Route: 048
     Dates: start: 20180908
  6. ADEMPAS [Suspect]
     Active Substance: RIOCIGUAT
     Indication: PRODUCT USED FOR UNKNOWN INDICATION
     Dosage: 2.5 MG, TID
     Route: 065
     Dates: start: 201809
  7. ADEMPAS [Suspect]
     Active Substance: RIOCIGUAT
     Dosage: 2.5 MG 3 TABLETS, ONCE DAILY
     Route: 065
  8. PROAIR HFA [Concomitant]
     Active Substance: ALBUTEROL SULFATE
     Dosage: 1 PUFF, Q4HRS, PRN
  9. SEROQUEL [Concomitant]
     Active Substance: QUETIAPINE FUMARATE
     Dosage: UNK
     Dates: start: 20190128
  10. ADEMPAS [Suspect]
     Active Substance: RIOCIGUAT
     Dosage: 3 TABLETS TWICE DAILY
     Route: 065
  11. DOXEPIN [Concomitant]
     Active Substance: DOXEPIN
     Dosage: 50 MG, QPM
  12. LITHIUM CARBONATE. [Concomitant]
     Active Substance: LITHIUM CARBONATE
     Dosage: 300 MG, BID

REACTIONS (35)
  - Pneumonia [Unknown]
  - Extra dose administered [Unknown]
  - Muscular weakness [Unknown]
  - Urinary tract infection [Recovered/Resolved]
  - Hypoxia [Recovered/Resolved]
  - Somnolence [Unknown]
  - Bowel movement irregularity [Unknown]
  - Pyrexia [Unknown]
  - Gastrooesophageal reflux disease [Unknown]
  - Joint swelling [Unknown]
  - Liposarcoma [Unknown]
  - Liposarcoma metastatic [Unknown]
  - Cutaneous sarcoidosis [Unknown]
  - Tremor [Unknown]
  - Pain [Unknown]
  - Dyspepsia [Unknown]
  - Fluid retention [Unknown]
  - Mental status changes [Recovered/Resolved]
  - Liposarcoma recurrent [Unknown]
  - Diarrhoea [Not Recovered/Not Resolved]
  - Confusional state [Recovered/Resolved]
  - Musculoskeletal chest pain [Unknown]
  - Syncope [Unknown]
  - Inappropriate schedule of product administration [Unknown]
  - Wrong dose [Unknown]
  - Asthenia [Recovered/Resolved]
  - Depressed level of consciousness [Recovered/Resolved]
  - Nausea [Not Recovered/Not Resolved]
  - Dehydration [Unknown]
  - Multiple drug therapy [Recovered/Resolved]
  - Delirium [Recovered/Resolved]
  - Hospitalisation [Unknown]
  - Vomiting [Not Recovered/Not Resolved]
  - Decreased appetite [Unknown]
  - Pain in extremity [Unknown]

NARRATIVE: CASE EVENT DATE: 20180915
